FAERS Safety Report 11887633 (Version 1)
Quarter: 2016Q1

REPORT INFORMATION
  Report Type: Spontaneous
  Country: IT (occurrence: IT)
  Receive Date: 20160105
  Receipt Date: 20160105
  Transmission Date: 20160526
  Serious: Yes (Hospitalization)
  Sender: FDA-Public Use
  Company Number: IT-CIPLA LTD.-2015IT09843

PATIENT

DRUGS (7)
  1. LEVOFLOXACIN. [Suspect]
     Active Substance: LEVOFLOXACIN
     Dosage: 500 MG, UNK
     Route: 042
  2. PARACETAMOL [Suspect]
     Active Substance: ACETAMINOPHEN
     Dosage: 1 G, UNK
     Route: 042
  3. METHYLPREDNISOLONE. [Suspect]
     Active Substance: METHYLPREDNISOLONE
     Dosage: 40 MG, QD
     Route: 042
  4. CEFTRIAXONE SODIUM. [Suspect]
     Active Substance: CEFTRIAXONE SODIUM
     Dosage: 1 G, UNK
     Route: 065
  5. RANITIDINE HYDROCHLORIDE. [Suspect]
     Active Substance: RANITIDINE HYDROCHLORIDE
     Dosage: 50 MG, UNK
     Route: 042
  6. LYSINE ACETYLSALICYLATE [Suspect]
     Active Substance: ASPIRIN LYSINE
     Dosage: 500 MG, UNK
     Route: 042
  7. ENOXAPARIN SODIUM. [Suspect]
     Active Substance: ENOXAPARIN SODIUM
     Dosage: 6000 IU, UNK
     Route: 065

REACTIONS (14)
  - Left ventricular hypertrophy [Recovered/Resolved]
  - Congestive cardiomyopathy [Recovered/Resolved]
  - Sinus rhythm [Recovered/Resolved]
  - Treatment failure [Unknown]
  - Tachyarrhythmia [Recovered/Resolved]
  - Splenomegaly [Recovered/Resolved]
  - Endocarditis bacterial [Recovered/Resolved]
  - Dyspnoea [Recovered/Resolved]
  - Atrial flutter [Recovered/Resolved]
  - Atrial fibrillation [Recovered/Resolved]
  - Diastolic dysfunction [Recovered/Resolved]
  - Arthralgia [Recovered/Resolved]
  - Septic embolus [Recovered/Resolved]
  - Pleural effusion [Recovered/Resolved]
